FAERS Safety Report 7557338-9 (Version None)
Quarter: 2011Q2

REPORT INFORMATION
  Report Type: 
  Country: None (occurrence: None)
  Receive Date: 20110620
  Receipt Date: 20100827
  Transmission Date: 20111010
  Serious: Yes (Death, Hospitalization)
  Sender: FDA-Public Use
  Company Number: PHHY2010DE92269

PATIENT
  Sex: Male
  Weight: 124 kg

DRUGS (9)
  1. BERLTHYROX [Concomitant]
     Dosage: 100 MG, QD
  2. GLUCOBON BIOMO [Concomitant]
     Dosage: 1000 MG, TWICE A DAY
  3. FOSINOPRIL ACT [Concomitant]
     Dosage: 12.5 MG, QD
  4. XIPAMIDE [Concomitant]
     Dosage: 40 MG, QD
  5. REMID [Concomitant]
     Dosage: 300 MG, QD
  6. VEROSPIRON [Concomitant]
     Dosage: 25 MG, QD
  7. SANDOSTATIN LAR [Suspect]
     Indication: NEUROENDOCRINE TUMOUR
     Dosage: 30 MG, UNK
     Route: 030
     Dates: start: 20100827
  8. ACTOS [Concomitant]
     Dosage: 45 MG,QD
  9. MOXONIDINE [Concomitant]
     Dosage: 0.4 MG, QD

REACTIONS (2)
  - DEATH [None]
  - DIARRHOEA [None]
